FAERS Safety Report 19682638 (Version 2)
Quarter: 2021Q3

REPORT INFORMATION
  Report Type: Report from Study
  Country: US (occurrence: US)
  Receive Date: 20210811
  Receipt Date: 20210921
  Transmission Date: 20211014
  Serious: Yes (Hospitalization, Other)
  Sender: FDA-Public Use
  Company Number: US-TAIHO ONCOLOGY  INC-EU-2021-02063

PATIENT
  Age: 73 Year
  Sex: Male

DRUGS (15)
  1. APIXABAN [Concomitant]
     Active Substance: APIXABAN
  2. GABAPENTIN. [Concomitant]
     Active Substance: GABAPENTIN
  3. LORAZEPAM. [Concomitant]
     Active Substance: LORAZEPAM
  4. LEVOFLOXACIN. [Concomitant]
     Active Substance: LEVOFLOXACIN
  5. ONDANSETRON [Concomitant]
     Active Substance: ONDANSETRON
  6. TYLENOL [Concomitant]
     Active Substance: ACETAMINOPHEN
  7. HYDROCO/APAP [Concomitant]
     Active Substance: ACETAMINOPHEN\HYDROCODONE
  8. TRAMADOL. [Concomitant]
     Active Substance: TRAMADOL
  9. DEXAMETHASONE. [Concomitant]
     Active Substance: DEXAMETHASONE
     Indication: GASTROINTESTINAL INFLAMMATION
  10. CORTISONE [Concomitant]
     Active Substance: CORTISONE
  11. LONSURF [Suspect]
     Active Substance: TIPIRACIL HYDROCHLORIDE\TRIFLURIDINE
     Indication: RECTAL CANCER METASTATIC
     Dosage: CYCLE 1
     Route: 048
     Dates: start: 20181105
  12. XARELTO [Concomitant]
     Active Substance: RIVAROXABAN
     Indication: THROMBOSIS
  13. ATIVAN [Concomitant]
     Active Substance: LORAZEPAM
  14. HYDROCODONE [Concomitant]
     Active Substance: HYDROCODONE
  15. BENADRYL [Concomitant]
     Active Substance: DIPHENHYDRAMINE HYDROCHLORIDE

REACTIONS (20)
  - Erythema [Unknown]
  - Fatigue [Not Recovered/Not Resolved]
  - Vomiting [Not Recovered/Not Resolved]
  - Muscular weakness [Unknown]
  - Small intestinal obstruction [Unknown]
  - Peripheral swelling [Unknown]
  - Aortic bypass [Unknown]
  - Diarrhoea [Not Recovered/Not Resolved]
  - Blister [Unknown]
  - Constipation [Not Recovered/Not Resolved]
  - Nausea [Not Recovered/Not Resolved]
  - Pain [Unknown]
  - White blood cell count decreased [Not Recovered/Not Resolved]
  - Gait disturbance [Unknown]
  - Dizziness postural [Unknown]
  - Dysstasia [Unknown]
  - Fluid retention [Unknown]
  - Hepatic infarction [Unknown]
  - Swelling [Unknown]
  - Pruritus [Unknown]

NARRATIVE: CASE EVENT DATE: 2021
